FAERS Safety Report 8197439-8 (Version None)
Quarter: 2012Q1

REPORT INFORMATION
  Report Type: 
  Country: None (occurrence: None)
  Receive Date: 20120309
  Receipt Date: 20120228
  Transmission Date: 20120608
  Serious: Yes (Other)
  Sender: FDA-Public Use
  Company Number: BR-BAYER-BR-2007-017163

PATIENT
  Age: 38 Year
  Sex: Female

DRUGS (3)
  1. FLUOXETINE HCL [Concomitant]
     Indication: ANXIETY
     Dosage: UNK, 1X/DAY
     Route: 048
  2. MIRENA [Suspect]
     Indication: MENORRHAGIA
     Dosage: FREQUENCY: CONTINUOUS
     Route: 015
     Dates: start: 20070419, end: 20111201
  3. CONTRACEPTIVES NOS [Concomitant]
     Indication: PRODUCT USED FOR UNKNOWN INDICATION
     Route: 048

REACTIONS (17)
  - INCREASED APPETITE [None]
  - SWELLING [None]
  - DEPRESSION [None]
  - BREAST PAIN [None]
  - WEIGHT INCREASED [None]
  - FEELING ABNORMAL [None]
  - POLYMENORRHOEA [None]
  - OVARIAN CYST [None]
  - ENDOMETRIOSIS [None]
  - HAEMORRHAGIC OVARIAN CYST [None]
  - VAGINAL HAEMORRHAGE [None]
  - PELVIC PAIN [None]
  - ABDOMINAL PAIN [None]
  - IRRITABILITY [None]
  - ADENOMYOSIS [None]
  - NERVOUSNESS [None]
  - MENORRHAGIA [None]
